FAERS Safety Report 12381516 (Version 1)
Quarter: 2016Q2

REPORT INFORMATION
  Report Type: Spontaneous
  Country: AT (occurrence: AT)
  Receive Date: 20160518
  Receipt Date: 20160518
  Transmission Date: 20160815
  Serious: Yes (Other)
  Sender: FDA-Public Use
  Company Number: PHHY2016AT066273

PATIENT
  Age: 43 Year
  Sex: Female
  Weight: 52 kg

DRUGS (1)
  1. THIAMAZOLE SANDOZ [Suspect]
     Active Substance: METHIMAZOLE
     Indication: RADIOACTIVE IODINE THERAPY
     Dosage: 1 DF, QD
     Route: 065
     Dates: start: 20160313, end: 20160317

REACTIONS (6)
  - Chills [Recovered/Resolved]
  - Fatigue [Recovered/Resolved]
  - Pyrexia [Recovered/Resolved]
  - Depressed mood [Recovered/Resolved]
  - Rash generalised [Recovered/Resolved]
  - Paraesthesia mucosal [Recovered/Resolved]

NARRATIVE: CASE EVENT DATE: 20160314
